FAERS Safety Report 22325482 (Version 1)
Quarter: 2023Q2

REPORT INFORMATION
  Report Type: Spontaneous
  Country: US (occurrence: None)
  Receive Date: 20230515
  Receipt Date: 20230515
  Transmission Date: 20230721
  Serious: No
  Sender: FDA-Public Use
  Company Number: None

PATIENT

DRUGS (2)
  1. DEXTROSE\DOBUTAMINE HYDROCHLORIDE [Suspect]
     Active Substance: DEXTROSE\DOBUTAMINE HYDROCHLORIDE
     Route: 058
  2. DEXTROSE\DOBUTAMINE HYDROCHLORIDE [Suspect]
     Active Substance: DEXTROSE\DOBUTAMINE HYDROCHLORIDE
     Route: 058

REACTIONS (3)
  - Wrong product stored [None]
  - Product label confusion [None]
  - Product packaging confusion [None]
